FAERS Safety Report 23087929 (Version 3)
Quarter: 2025Q1

REPORT INFORMATION
  Report Type: Spontaneous
  Country: DE (occurrence: DE)
  Receive Date: 20231020
  Receipt Date: 20250214
  Transmission Date: 20250409
  Serious: No
  Sender: ALKEM
  Company Number: DE-ALKEM LABORATORIES LIMITED-DE-ALKEM-2023-08286

PATIENT
  Age: 31 Year
  Sex: Female
  Weight: 85 kg

DRUGS (13)
  1. FINGOLIMOD [Suspect]
     Active Substance: FINGOLIMOD
     Indication: Relapsing multiple sclerosis
     Dosage: 0.56 MILLIGRAM, QD  (EVERY 1 DAY)
     Route: 048
     Dates: start: 20200824
  2. OCREVUS [Suspect]
     Active Substance: OCRELIZUMAB
     Indication: Relapsing multiple sclerosis
     Dosage: 300 MILLIGRAM, ONCE IN 2 WEEKS
     Route: 042
     Dates: end: 20220518
  3. OCREVUS [Suspect]
     Active Substance: OCRELIZUMAB
     Route: 042
     Dates: start: 20221117
  4. DIENOGEST\ETHINYL ESTRADIOL [Concomitant]
     Active Substance: DIENOGEST\ETHINYL ESTRADIOL
     Indication: Product used for unknown indication
     Dosage: 0.03 MILLIGRAM, QD (EVERY 1 DAY)
     Route: 065
  5. Cimetidin [Concomitant]
     Indication: Product used for unknown indication
     Dosage: 200 MILLIGRAM, ONCE IN 2 WEEKS
     Route: 048
     Dates: start: 20220504, end: 20220518
  6. Cimetidin [Concomitant]
     Route: 065
     Dates: start: 20221117
  7. DESLORATADINE [Concomitant]
     Active Substance: DESLORATADINE
     Indication: Seasonal allergy
     Dosage: 5 MILLIGRAM, QD(EVERY ONE DAY)
     Route: 048
  8. METHYLPREDNISOLONE [Concomitant]
     Active Substance: METHYLPREDNISOLONE
     Indication: Product used for unknown indication
     Route: 065
  9. PFIZER-BIONTECH COVID-19 VACCINE [Concomitant]
     Active Substance: TOZINAMERAN
     Indication: COVID-19 immunisation
     Dosage: UNK, QD (EVERY 1 DAY)
     Route: 030
     Dates: start: 20211201, end: 20211201
  10. PFIZER-BIONTECH COVID-19 VACCINE [Concomitant]
     Active Substance: TOZINAMERAN
     Dosage: UNK, QD (EVERY 1 DAY)
     Route: 030
  11. PFIZER-BIONTECH COVID-19 VACCINE [Concomitant]
     Active Substance: TOZINAMERAN
     Dosage: UNK, QD (EVERY 1 DAY)
     Route: 030
     Dates: start: 20210618, end: 20210618
  12. PREGABALIN [Concomitant]
     Active Substance: PREGABALIN
     Indication: Multiple sclerosis
     Route: 048
     Dates: start: 20220509
  13. TICK-BORNE ENCEPHALITIS VACCINE [Concomitant]
     Active Substance: TICK-BORNE ENCEPHALITIS VACCINE
     Indication: Prophylaxis
     Dosage: UNK, QD (EVERY 1 DAY)
     Route: 030
     Dates: start: 20220321, end: 20220321

REACTIONS (11)
  - C-reactive protein increased [Unknown]
  - Arthritis [Unknown]
  - C-reactive protein increased [Recovered/Resolved]
  - C-reactive protein increased [Recovered/Resolved]
  - Eye inflammation [Recovered/Resolved]
  - Neutrophil count decreased [Recovered/Resolved]
  - Urinary tract infection [Recovered/Resolved]
  - Urinary tract infection [Recovered/Resolved]
  - White blood cells urine positive [Recovered/Resolved]
  - COVID-19 [Recovered/Resolved]
  - Urinary tract infection [Recovered/Resolved]

NARRATIVE: CASE EVENT DATE: 20220106
